FAERS Safety Report 9156329 (Version 1)
Quarter: 2013Q1

REPORT INFORMATION
  Report Type: Spontaneous
  Country: US (occurrence: US)
  Receive Date: 20130312
  Receipt Date: 20130312
  Transmission Date: 20140127
  Serious: No
  Sender: FDA-Public Use
  Company Number: US-009507513-1303USA002779

PATIENT
  Age: 27 Year
  Sex: Female
  Weight: 85.9 kg

DRUGS (1)
  1. NEXPLANON [Suspect]
     Indication: CONTRACEPTION
     Dosage: 1 DF, UNK
     Route: 059
     Dates: start: 20130219, end: 20130219

REACTIONS (2)
  - Device difficult to use [Unknown]
  - No adverse event [Unknown]
